FAERS Safety Report 10516085 (Version 1)
Quarter: 2014Q4

REPORT INFORMATION
  Report Type: Spontaneous
  Country: DK (occurrence: DE)
  Receive Date: 20141014
  Receipt Date: 20141014
  Transmission Date: 20150528
  Serious: Yes (Other)
  Sender: FDA-Public Use
  Company Number: DE-FRI-1000071469

PATIENT
  Age: 28 Year
  Sex: Female

DRUGS (3)
  1. CITALOPRAM [Suspect]
     Active Substance: CITALOPRAM HYDROBROMIDE
     Indication: SELF-MEDICATION
     Dosage: 2.5 MG
     Route: 048
  2. TRAMADOLOR [Suspect]
     Active Substance: TRAMADOL
     Indication: SUBSTANCE ABUSER
     Dosage: 200 MG
     Route: 048
  3. FEMIBION [Suspect]
     Active Substance: VITAMINS
     Indication: PROPHYLAXIS OF NEURAL TUBE DEFECT
     Route: 048

REACTIONS (4)
  - Caesarean section [Unknown]
  - Pyelonephritis [Unknown]
  - Headache [Unknown]
  - Vomiting in pregnancy [Unknown]

NARRATIVE: CASE EVENT DATE: 20130806
